FAERS Safety Report 7824464-6 (Version None)
Quarter: 2011Q4

REPORT INFORMATION
  Report Type: 
  Country: None (occurrence: None)
  Receive Date: 20111014
  Receipt Date: 20110929
  Transmission Date: 20120403
  Serious: Yes (Other)
  Sender: FDA-Public Use
  Company Number: TCI2011A04613

PATIENT
  Age: 75 Year
  Sex: Male

DRUGS (5)
  1. SEIBULE (MIGLITOL) [Concomitant]
  2. AMARYL [Concomitant]
  3. ACTOS [Suspect]
     Indication: DIABETES MELLITUS
     Dosage: 15 MG (15 MG, 1 IN 1 D) PER ORAL
     Route: 048
     Dates: start: 20100805, end: 20110712
  4. METFORMIN HCL [Concomitant]
  5. AMLODIN OD (AMLODIPINE BESILATE) [Concomitant]

REACTIONS (3)
  - HAEMATURIA [None]
  - BLADDER CANCER [None]
  - GLYCOSYLATED HAEMOGLOBIN INCREASED [None]
